FAERS Safety Report 14271726 (Version 1)
Quarter: 2017Q4

REPORT INFORMATION
  Report Type: Spontaneous
  Country: CH (occurrence: CH)
  Receive Date: 20171211
  Receipt Date: 20171211
  Transmission Date: 20180321
  Serious: Yes (Life-Threatening, Hospitalization, Other)
  Sender: FDA-Public Use
  Company Number: CH-OTSUKA-2016_021892

PATIENT
  Age: 40 Year
  Sex: Male
  Weight: 100 kg

DRUGS (14)
  1. TRANXILIUM [Concomitant]
     Active Substance: CLORAZEPATE DIPOTASSIUM
     Indication: PRODUCT USED FOR UNKNOWN INDICATION
     Dosage: UNK
     Route: 065
  2. ABILIFY [Suspect]
     Active Substance: ARIPIPRAZOLE
     Dosage: 10 MG, QD
     Route: 048
     Dates: start: 20160427, end: 20160430
  3. VALPROATE [Concomitant]
     Active Substance: VALPROIC ACID
     Dosage: UNK, QD
     Route: 065
     Dates: start: 20160422, end: 20160427
  4. CLOZAPINE. [Concomitant]
     Active Substance: CLOZAPINE
     Indication: PRODUCT USED FOR UNKNOWN INDICATION
     Dosage: UNK
     Route: 065
     Dates: start: 20160602
  5. CLOZAPINE. [Concomitant]
     Active Substance: CLOZAPINE
     Dosage: 100 MG, QD
     Route: 065
     Dates: start: 20160628
  6. CEFTRIAXON [Concomitant]
     Active Substance: CEFTRIAXONE
     Indication: PNEUMONIA
     Dosage: UNK
     Route: 065
     Dates: end: 20160415
  7. OLANZAPINE. [Concomitant]
     Active Substance: OLANZAPINE
     Indication: PRODUCT USED FOR UNKNOWN INDICATION
     Dosage: 10 MG, BID
     Route: 065
     Dates: end: 20160419
  8. VALPROATE [Concomitant]
     Active Substance: VALPROIC ACID
     Indication: PRODUCT USED FOR UNKNOWN INDICATION
     Dosage: UNK, QD
     Route: 065
     Dates: end: 20160419
  9. LITHIUM. [Concomitant]
     Active Substance: LITHIUM
     Indication: PRODUCT USED FOR UNKNOWN INDICATION
     Dosage: 8.1 MMOL, TID
     Route: 050
     Dates: start: 20160409, end: 20160420
  10. PRIADEL [Concomitant]
     Active Substance: LITHIUM CARBONATE
     Indication: PRODUCT USED FOR UNKNOWN INDICATION
     Dosage: 10.8 MMOL, BID
     Route: 065
     Dates: start: 20160409
  11. ABILIFY [Suspect]
     Active Substance: ARIPIPRAZOLE
     Indication: SCHIZOAFFECTIVE DISORDER
     Dosage: 5 MG, QD
     Route: 048
     Dates: start: 20160426, end: 20160426
  12. CLARITHROMYCIN. [Concomitant]
     Active Substance: CLARITHROMYCIN
     Indication: PNEUMONIA
     Dosage: UNK
     Route: 065
     Dates: start: 20160409, end: 20160409
  13. VALPROATE [Concomitant]
     Active Substance: VALPROIC ACID
     Dosage: UNK UNK, QD
     Route: 065
     Dates: start: 20160422, end: 20160427
  14. OLANZAPINE. [Concomitant]
     Active Substance: OLANZAPINE
     Indication: PRODUCT USED FOR UNKNOWN INDICATION
     Dosage: 10 MG, BID
     Route: 065
     Dates: end: 20160419

REACTIONS (2)
  - Prescribed underdose [Unknown]
  - Neuroleptic malignant syndrome [Recovered/Resolved]

NARRATIVE: CASE EVENT DATE: 20160428
